FAERS Safety Report 6838584-6 (Version None)
Quarter: 2010Q3

REPORT INFORMATION
  Report Type: 
  Country: None (occurrence: None)
  Receive Date: 20100713
  Receipt Date: 20070614
  Transmission Date: 20110219
  Serious: No
  Sender: FDA-Public Use
  Company Number: US-PFIZER INC-2007051163

PATIENT
  Sex: Female
  Weight: 95.909 kg

DRUGS (8)
  1. CHANTIX [Suspect]
     Indication: SMOKING CESSATION THERAPY
     Dates: start: 20070607
  2. XANAX [Concomitant]
  3. HYDROCODONE BITARTRATE [Concomitant]
  4. FIORICET [Concomitant]
  5. DRUG, UNSPECIFIED [Concomitant]
     Indication: SYSTEMIC LUPUS ERYTHEMATOSUS
  6. SOMA [Concomitant]
  7. ALL OTHER THERAPEUTIC PRODUCTS [Concomitant]
     Indication: HYSTERECTOMY
  8. PROMETHAZINE [Concomitant]
     Indication: VOMITING

REACTIONS (2)
  - NIGHTMARE [None]
  - WEIGHT DECREASED [None]
